FAERS Safety Report 11129139 (Version 2)
Quarter: 2015Q2

REPORT INFORMATION
  Report Type: Spontaneous
  Country: SE (occurrence: SE)
  Receive Date: 20150521
  Receipt Date: 20150615
  Transmission Date: 20150821
  Serious: Yes (Life-Threatening, Hospitalization)
  Sender: FDA-Public Use
  Company Number: SE-PFIZER INC-2015168035

PATIENT
  Age: 53 Year
  Sex: Female
  Weight: 69 kg

DRUGS (1)
  1. LYRICA [Suspect]
     Active Substance: PREGABALIN
     Indication: GENERALISED ANXIETY DISORDER
     Dosage: 75 MG, 2X/DAY
     Dates: start: 20150507, end: 20150514

REACTIONS (12)
  - Hallucination [Unknown]
  - Abnormal dreams [Unknown]
  - Rib fracture [Unknown]
  - Feeling abnormal [Unknown]
  - Confusional state [Unknown]
  - Screaming [Unknown]
  - Agitation [Unknown]
  - Amnesia [Unknown]
  - Depersonalisation [Unknown]
  - Epilepsy [Recovered/Resolved]
  - Fall [Unknown]
  - Dizziness [Unknown]

NARRATIVE: CASE EVENT DATE: 20150511
